FAERS Safety Report 8011817-9 (Version None)
Quarter: 2011Q4

REPORT INFORMATION
  Report Type: 
  Country: None (occurrence: None)
  Receive Date: 20111228
  Receipt Date: 20111226
  Transmission Date: 20120403
  Serious: Yes (Disabling)
  Sender: FDA-Public Use
  Company Number: JP-PFIZER INC-2011313147

PATIENT
  Age: 73 Year
  Sex: Female
  Weight: 30.2 kg

DRUGS (3)
  1. CARBOPLATIN [Concomitant]
     Indication: NEOPLASM MALIGNANT
     Dosage: UNK
  2. ZYVOX [Suspect]
     Dosage: 600 MG, 2X/DAY
     Route: 041
     Dates: start: 20110224, end: 20110301
  3. TAXOL [Concomitant]
     Indication: NEOPLASM MALIGNANT
     Dosage: UNK

REACTIONS (1)
  - LEUKOENCEPHALOPATHY [None]
